FAERS Safety Report 6917379-9 (Version None)
Quarter: 2010Q3

REPORT INFORMATION
  Report Type: 
  Country: None (occurrence: None)
  Receive Date: 20100805
  Receipt Date: 20100728
  Transmission Date: 20110219
  Serious: Yes (Other)
  Sender: FDA-Public Use
  Company Number: 20109087

PATIENT
  Age: 23 Year
  Sex: Male

DRUGS (1)
  1. GABALON INTRATHECAL(BACLOFEN INJECTION) 2000 MCG/ML [Suspect]
     Indication: MUSCLE SPASTICITY
     Dosage: 249.8 MCG, DAILY, INTRATHECAL
     Route: 037

REACTIONS (6)
  - DECUBITUS ULCER [None]
  - DYSTONIA [None]
  - IMPLANT SITE INFECTION [None]
  - IMPLANT SITE REACTION [None]
  - POCKET EROSION [None]
  - UNEVALUABLE EVENT [None]
